FAERS Safety Report 18213461 (Version 2)
Quarter: 2020Q3

REPORT INFORMATION
  Report Type: Spontaneous
  Country: RU (occurrence: RU)
  Receive Date: 20200831
  Receipt Date: 20200924
  Transmission Date: 20201103
  Serious: Yes (Other)
  Sender: FDA-Public Use
  Company Number: RU-BAYER-2020-180401

PATIENT
  Age: 40 Year
  Sex: Male

DRUGS (1)
  1. ULTRAVIST [Suspect]
     Active Substance: IOPROMIDE
     Indication: X-RAY
     Dosage: 50 ML, ONCE
     Route: 042
     Dates: start: 20200819, end: 20200819

REACTIONS (8)
  - White blood cell count increased [None]
  - Shift to the left [None]
  - Spinal pain [Recovered/Resolved]
  - Tremor [Recovered/Resolved]
  - Asthenia [Recovered/Resolved]
  - Body temperature increased [Recovered/Resolved]
  - Blood pressure increased [None]
  - Chills [Recovered/Resolved]

NARRATIVE: CASE EVENT DATE: 20200819
